FAERS Safety Report 19202788 (Version 1)
Quarter: 2021Q2

REPORT INFORMATION
  Report Type: Report from Study
  Country: CA (occurrence: CA)
  Receive Date: 20210503
  Receipt Date: 20210503
  Transmission Date: 20210717
  Serious: Yes (Hospitalization)
  Sender: FDA-Public Use
  Company Number: CA-JNJFOC-20210438516

PATIENT
  Age: 4 Decade
  Sex: Male

DRUGS (1)
  1. REMICADE [Suspect]
     Active Substance: INFLIXIMAB
     Indication: CROHN^S DISEASE
     Route: 042

REACTIONS (3)
  - Anal fissure [Unknown]
  - SARS-CoV-2 test positive [Unknown]
  - Superinfection [Unknown]

NARRATIVE: CASE EVENT DATE: 202104
